FAERS Safety Report 8924441 (Version 1)
Quarter: 2012Q4

REPORT INFORMATION
  Report Type: 
  Country: CN (occurrence: CN)
  Receive Date: 20121127
  Receipt Date: 20121127
  Transmission Date: 20130627
  Serious: Yes (Hospitalization, Other)
  Sender: FDA-Public Use
  Company Number: CN-PAR PHARMACEUTICAL, INC-2012SCPR004716

PATIENT

DRUGS (3)
  1. LEVETIRACETAM [Suspect]
     Indication: CONVULSION
     Dosage: 20 mg/kg, / day
     Route: 065
  2. LEVETIRACETAM [Suspect]
     Dosage: 30 mg/kg, / day
     Route: 065
  3. PHENOBARBITAL [Concomitant]
     Indication: CONVULSION
     Dosage: 5 mg/kg, / day
     Route: 065

REACTIONS (3)
  - Stevens-Johnson syndrome [Recovered/Resolved]
  - Convulsion [Unknown]
  - Drug hypersensitivity [Unknown]
